FAERS Safety Report 4314059-3 (Version None)
Quarter: 2004Q1

REPORT INFORMATION
  Report Type: 
  Country: None (occurrence: None)
  Receive Date: 20040305
  Receipt Date: 20040106
  Transmission Date: 20041129
  Serious: Yes (Hospitalization)
  Sender: FDA-Public Use
  Company Number: 2004UW00423

PATIENT
  Age: 75 Year
  Sex: Male

DRUGS (4)
  1. CRESTOR [Suspect]
     Indication: LIPIDS
     Dosage: 20 MG QD PO
     Route: 048
     Dates: start: 20031126, end: 20031231
  2. LOPRESSOR [Concomitant]
  3. IMDUR [Concomitant]
  4. ASPIRIN [Concomitant]

REACTIONS (2)
  - PNEUMONIA [None]
  - RHABDOMYOLYSIS [None]
